FAERS Safety Report 17719611 (Version 1)
Quarter: 2020Q2

REPORT INFORMATION
  Report Type: Spontaneous
  Country: CA (occurrence: CA)
  Receive Date: 20200428
  Receipt Date: 20200428
  Transmission Date: 20200714
  Serious: Yes (Other)
  Sender: FDA-Public Use
  Company Number: NVSC2020CA111078

PATIENT
  Sex: Female

DRUGS (33)
  1. APO-ACETAMINOPHEN [Suspect]
     Active Substance: ACETAMINOPHEN
     Indication: PRODUCT USED FOR UNKNOWN INDICATION
     Dosage: 2.0 DF, QID
     Route: 065
  2. APO-PREDNISONE [Suspect]
     Active Substance: PREDNISONE
     Dosage: 1 UNK
     Route: 065
  3. COMBIVENT [Suspect]
     Active Substance: ALBUTEROL SULFATE\IPRATROPIUM BROMIDE
     Indication: PRODUCT USED FOR UNKNOWN INDICATION
     Dosage: UNK
     Route: 065
  4. LACTAID [Suspect]
     Active Substance: LACTASE
     Indication: PRODUCT USED FOR UNKNOWN INDICATION
     Dosage: 1 DF, TID
     Route: 065
  5. THEOPHYLLINE [Suspect]
     Active Substance: THEOPHYLLINE ANHYDROUS
     Indication: PRODUCT USED FOR UNKNOWN INDICATION
     Dosage: UNK
     Route: 065
  6. ACCUPRIL [Suspect]
     Active Substance: QUINAPRIL HYDROCHLORIDE
     Indication: PRODUCT USED FOR UNKNOWN INDICATION
     Dosage: 1 DF, QD
     Route: 065
  7. BETAMETHASONE VALERATE. [Suspect]
     Active Substance: BETAMETHASONE VALERATE
     Indication: PRODUCT USED FOR UNKNOWN INDICATION
     Dosage: UNK
     Route: 065
  8. FLUOXETINE [Suspect]
     Active Substance: FLUOXETINE HYDROCHLORIDE
     Indication: PRODUCT USED FOR UNKNOWN INDICATION
     Dosage: 2 DF, BID
     Route: 065
  9. FUROSEMIDE. [Suspect]
     Active Substance: FUROSEMIDE
     Indication: PRODUCT USED FOR UNKNOWN INDICATION
     Route: 065
  10. METFORMIN HYDROCHLORIDE. [Suspect]
     Active Substance: METFORMIN HYDROCHLORIDE
     Indication: PRODUCT USED FOR UNKNOWN INDICATION
     Dosage: 1 DF, BID
     Route: 065
  11. MONTELUKAST [Suspect]
     Active Substance: MONTELUKAST SODIUM
     Indication: PRODUCT USED FOR UNKNOWN INDICATION
     Dosage: 1 DF, QD
     Route: 065
  12. UNIPHYL [Suspect]
     Active Substance: THEOPHYLLINE ANHYDROUS
     Indication: PRODUCT USED FOR UNKNOWN INDICATION
     Route: 065
  13. SEEBRI BREEZHALER [Suspect]
     Active Substance: GLYCOPYRROLATE
     Indication: PRODUCT USED FOR UNKNOWN INDICATION
     Dosage: 1 DF, QD
     Route: 065
  14. APO-AMITRIPTYLINE [Suspect]
     Active Substance: AMITRIPTYLINE HYDROCHLORIDE
     Indication: PRODUCT USED FOR UNKNOWN INDICATION
     Dosage: 4.0 DF, QD
     Route: 065
  15. RHO-NITRO PUMPSPRAY [Suspect]
     Active Substance: NITROGLYCERIN
     Indication: PRODUCT USED FOR UNKNOWN INDICATION
     Dosage: 1 DF
     Route: 065
  16. SPIRIVA [Suspect]
     Active Substance: TIOTROPIUM BROMIDE MONOHYDRATE
     Indication: PRODUCT USED FOR UNKNOWN INDICATION
     Dosage: UNK
     Route: 065
  17. APO-PREDNISONE [Suspect]
     Active Substance: PREDNISONE
     Dosage: 2 UNK
     Route: 065
  18. NOVORAPID [Suspect]
     Active Substance: INSULIN ASPART
     Indication: PRODUCT USED FOR UNKNOWN INDICATION
     Dosage: 3 DF, QD
     Route: 042
  19. APO-ATORVASTATIN [Suspect]
     Active Substance: ATORVASTATIN
     Indication: PRODUCT USED FOR UNKNOWN INDICATION
     Dosage: 1.0 DF, QD
     Route: 065
  20. APO-PREDNISONE [Suspect]
     Active Substance: PREDNISONE
     Dosage: 4 UNK
     Route: 065
  21. AZITHROMYCIN ANHYDROUS. [Suspect]
     Active Substance: AZITHROMYCIN ANHYDROUS
     Indication: PRODUCT USED FOR UNKNOWN INDICATION
     Dosage: 3 DF
     Route: 065
  22. DICETEL [Suspect]
     Active Substance: PINAVERIUM BROMIDE
     Indication: PRODUCT USED FOR UNKNOWN INDICATION
     Dosage: UNK
     Route: 065
  23. FLOVENT [Suspect]
     Active Substance: FLUTICASONE PROPIONATE
     Indication: PRODUCT USED FOR UNKNOWN INDICATION
     Dosage: UNK
     Route: 065
  24. LOPERAMIDE [Suspect]
     Active Substance: LOPERAMIDE
     Indication: ASTHMA
     Dosage: 100 MG
     Route: 058
  25. MOMETASONE [Suspect]
     Active Substance: MOMETASONE
     Indication: PRODUCT USED FOR UNKNOWN INDICATION
     Dosage: 2.0 DF, BID
     Route: 065
  26. PREDNISONE. [Suspect]
     Active Substance: PREDNISONE
     Indication: PRODUCT USED FOR UNKNOWN INDICATION
     Route: 065
  27. SINGULAIR [Suspect]
     Active Substance: MONTELUKAST SODIUM
     Indication: PRODUCT USED FOR UNKNOWN INDICATION
     Dosage: UNK
     Route: 065
  28. ADVAIR HFA [Suspect]
     Active Substance: FLUTICASONE PROPIONATE\SALMETEROL XINAFOATE
     Indication: PRODUCT USED FOR UNKNOWN INDICATION
     Dosage: 2.0 DF, BID
     Route: 055
  29. APO-DIMENHYDRINATE [Suspect]
     Active Substance: DIMENHYDRINATE
     Indication: PRODUCT USED FOR UNKNOWN INDICATION
     Dosage: UNK
     Route: 065
  30. RATIO-LACTULOSE [Suspect]
     Active Substance: LACTULOSE
     Indication: PRODUCT USED FOR UNKNOWN INDICATION
     Dosage: 1.5 ML, BID
     Route: 065
  31. VENTOLIN [Suspect]
     Active Substance: ALBUTEROL SULFATE
     Indication: PRODUCT USED FOR UNKNOWN INDICATION
     Dosage: UNK
     Route: 065
  32. VITAMIN B12 [Suspect]
     Active Substance: CYANOCOBALAMIN
     Indication: PRODUCT USED FOR UNKNOWN INDICATION
     Dosage: 1.0 ML
     Route: 042
  33. APO-PREDNISONE [Suspect]
     Active Substance: PREDNISONE
     Indication: PRODUCT USED FOR UNKNOWN INDICATION
     Dosage: 3 DF, QD
     Route: 065

REACTIONS (32)
  - Chest discomfort [Unknown]
  - Cough [Unknown]
  - Dyspnoea exertional [Unknown]
  - Insomnia [Unknown]
  - Prolonged expiration [Unknown]
  - Rhinorrhoea [Unknown]
  - Depressive symptom [Unknown]
  - Injury [Unknown]
  - Malaise [Unknown]
  - Pyrexia [Unknown]
  - Angina pectoris [Unknown]
  - Asthma [Unknown]
  - Nasopharyngitis [Unknown]
  - Fall [Unknown]
  - Rales [Unknown]
  - Dyspnoea [Unknown]
  - Flank pain [Unknown]
  - Influenza [Unknown]
  - Nasal congestion [Unknown]
  - Productive cough [Unknown]
  - Weight decreased [Unknown]
  - Chest pain [Unknown]
  - Heart sounds [Unknown]
  - Loss of personal independence in daily activities [Unknown]
  - Respiration abnormal [Unknown]
  - Sleep disorder due to a general medical condition [Unknown]
  - Stress [Unknown]
  - Appetite disorder [Unknown]
  - Depressed mood [Unknown]
  - Lower respiratory tract infection [Unknown]
  - Upper respiratory tract infection [Unknown]
  - Wheezing [Unknown]
